FAERS Safety Report 8501296 (Version 3)
Quarter: 2012Q4

REPORT INFORMATION
  Report Type: Spontaneous
  Country: DE (occurrence: None)
  Receive Date: 20120403
  Receipt Date: 20120917
  Transmission Date: 20130627
  Serious: Yes (Hospitalization)
  Sender: FDA-Public Use
  Company Number: 2012AP000880

PATIENT
  Age: 48 Year
  Sex: Female

DRUGS (7)
  1. OLANZAPINE [Suspect]
     Indication: SCHIZOPHRENIA, CATATONIC TYPE
     Dosage: 10 MG;PO
     Route: 048
  2. LORAZEPAM [Suspect]
     Indication: DRUG USE FOR UNKNOWN INDICATION
     Dosage: 4.5 MG ; 2 MG;QD
  3. LORAZEPAM [Suspect]
     Indication: DRUG USE FOR UNKNOWN INDICATION
  4. CLOZAPINE [Concomitant]
  5. HALOPERIDOL [Concomitant]
  6. OLANZAPINE [Concomitant]
  7. HALOPERIDOL [Concomitant]

REACTIONS (9)
  - Hypothermia [None]
  - Oxygen saturation decreased [None]
  - General physical health deterioration [None]
  - Poor personal hygiene [None]
  - Apathy [None]
  - Stereotypy [None]
  - Coordination abnormal [None]
  - Akinesia [None]
  - Ataxia [None]
